FAERS Safety Report 5154327-9 (Version None)
Quarter: 2006Q4

REPORT INFORMATION
  Report Type: 
  Country: None (occurrence: None)
  Receive Date: 20061114
  Receipt Date: 20061031
  Transmission Date: 20070319
  Serious: Yes (Life-Threatening, Hospitalization)
  Sender: FDA-Public Use
  Company Number: 2006134718

PATIENT
  Age: 31 Year
  Sex: Female
  Weight: 62 kg

DRUGS (3)
  1. PREDNISOLONE [Suspect]
     Indication: HEPATITIS
     Dosage: 40 MG (40 MG, 1 IN 1 D), ORAL
     Route: 048
     Dates: start: 20060612, end: 20060618
  2. IBUPROFEN [Suspect]
     Indication: PAIN
     Dosage: 3 IN 1 D, ORAL
     Route: 048
     Dates: start: 20060802
  3. SPIRONOLACTONE [Concomitant]

REACTIONS (3)
  - DUODENAL ULCER [None]
  - HAEMATEMESIS [None]
  - MELAENA [None]
